FAERS Safety Report 6942276-2 (Version None)
Quarter: 2010Q3

REPORT INFORMATION
  Report Type: 
  Country: None (occurrence: None)
  Receive Date: 20100826
  Receipt Date: 20100730
  Transmission Date: 20110219
  Serious: Yes (Hospitalization)
  Sender: FDA-Public Use
  Company Number: BR-MEDIMMUNE-MEDI-0011500

PATIENT
  Sex: Male
  Weight: 3.8 kg

DRUGS (2)
  1. SYNAGIS [Suspect]
     Indication: CARDIAC DISORDER
     Route: 030
     Dates: start: 20100527, end: 20100527
  2. FERROUS GLUCONATE [Concomitant]
     Indication: NUTRITIONAL SUPPORT
     Route: 048

REACTIONS (3)
  - CONGENITAL PULMONARY VALVE ATRESIA [None]
  - DRUG HYPERSENSITIVITY [None]
  - INGUINAL HERNIA [None]
